FAERS Safety Report 18793977 (Version 3)
Quarter: 2024Q4

REPORT INFORMATION
  Report Type: Spontaneous
  Country: US (occurrence: US)
  Receive Date: 20210127
  Receipt Date: 20241004
  Transmission Date: 20250115
  Serious: Yes (Other)
  Sender: LANNETT
  Company Number: US-LANNETT COMPANY, INC.-US-2021LAN000005

PATIENT
  Sex: Female

DRUGS (3)
  1. LEVOTHYROXINE SODIUM [Suspect]
     Active Substance: LEVOTHYROXINE SODIUM
     Indication: Hypothyroidism
     Dosage: UNK
     Route: 065
  2. LEVOTHYROXINE SODIUM [Suspect]
     Active Substance: LEVOTHYROXINE SODIUM
     Dosage: UNK
     Route: 065
  3. LEVOTHYROXINE SODIUM [Suspect]
     Active Substance: LEVOTHYROXINE SODIUM
     Dosage: UNK
     Route: 065

REACTIONS (17)
  - Goitre [Unknown]
  - Dehydration [Unknown]
  - Dry eye [Unknown]
  - Feeling cold [Unknown]
  - Asthenia [Unknown]
  - Impaired driving ability [Unknown]
  - Malaise [Unknown]
  - Skin atrophy [Unknown]
  - Quality of life decreased [Unknown]
  - Vision blurred [Unknown]
  - Muscle disorder [Unknown]
  - Alopecia [Unknown]
  - Palpitations [Unknown]
  - Overdose [Unknown]
  - Drug effect less than expected [Unknown]
  - Therapeutic product effect variable [Unknown]
  - Therapeutic product effect increased [Unknown]
